FAERS Safety Report 5520647-9 (Version None)
Quarter: 2007Q4

REPORT INFORMATION
  Report Type: 
  Country: None (occurrence: None)
  Receive Date: 20071119
  Receipt Date: 20071107
  Transmission Date: 20080405
  Serious: Yes (Disabling, Other)
  Sender: FDA-Public Use
  Company Number: HQWYE945930AUG07

PATIENT
  Sex: Female

DRUGS (2)
  1. EFFEXOR XR [Suspect]
     Indication: ANXIETY
     Dates: start: 20070613, end: 20070619
  2. EFFEXOR XR [Suspect]
     Dates: start: 20070620, end: 20070625

REACTIONS (4)
  - BLINDNESS [None]
  - DRUG INEFFECTIVE [None]
  - NONSPECIFIC REACTION [None]
  - VISUAL DISTURBANCE [None]
